FAERS Safety Report 9338314 (Version 1)
Quarter: 2013Q2

REPORT INFORMATION
  Report Type: Spontaneous
  Country: US (occurrence: None)
  Receive Date: 20130605
  Receipt Date: 20130605
  Transmission Date: 20140414
  Serious: Yes (Hospitalization)
  Sender: FDA-Public Use
  Company Number: None

PATIENT
  Age: 17 Year
  Sex: Male
  Weight: 47.6 kg

DRUGS (1)
  1. THIOGUANINE [Suspect]

REACTIONS (4)
  - Portal hypertension [None]
  - Oesophageal varices haemorrhage [None]
  - Haemoglobin decreased [None]
  - Abdominal pain [None]
